FAERS Safety Report 8031647-1 (Version None)
Quarter: 2012Q1

REPORT INFORMATION
  Report Type: 
  Country: None (occurrence: None)
  Receive Date: 20120109
  Receipt Date: 20111031
  Transmission Date: 20120608
  Serious: Yes (Other)
  Sender: FDA-Public Use
  Company Number: US-ENDO PHARMACEUTICALS INC.-PREV20110019

PATIENT
  Sex: Female
  Weight: 69.916 kg

DRUGS (5)
  1. LEVOTHYROXINE SODIUM [Concomitant]
     Indication: HYPOTHYROIDISM
     Route: 065
     Dates: start: 20020101
  2. PREVIFEM [Suspect]
     Indication: CONTRACEPTION
     Dosage: 1 TABLET
     Route: 048
     Dates: start: 20110101
  3. SIMVASTATIN [Concomitant]
     Indication: HYPERCHOLESTEROLAEMIA
     Route: 065
     Dates: start: 20090101, end: 20111122
  4. SYMBICORT [Concomitant]
     Indication: ASTHMA
     Dosage: UNKNOWN
     Route: 055
     Dates: start: 20030101
  5. ALBUTEROL [Concomitant]
     Indication: ASTHMA
     Dosage: UNKNOWN

REACTIONS (4)
  - SLUGGISHNESS [None]
  - EXOMPHALOS [None]
  - DRUG INEFFECTIVE [None]
  - PREGNANCY ON ORAL CONTRACEPTIVE [None]
